FAERS Safety Report 17030309 (Version 1)
Quarter: 2019Q4

REPORT INFORMATION
  Report Type: Spontaneous
  Country: US (occurrence: US)
  Receive Date: 20191114
  Receipt Date: 20191114
  Transmission Date: 20200122
  Serious: Yes (Hospitalization)
  Sender: FDA-Public Use
  Company Number: US-SUN PHARMACEUTICAL INDUSTRIES LTD-2019R1-226958

PATIENT
  Age: 8 Month
  Sex: Female

DRUGS (2)
  1. CEPHALEXIN. [Suspect]
     Active Substance: CEPHALEXIN
     Indication: UPPER RESPIRATORY TRACT INFECTION
     Dosage: UNK
     Route: 065
  2. CEPHALEXIN. [Suspect]
     Active Substance: CEPHALEXIN
     Indication: OTITIS MEDIA

REACTIONS (4)
  - Ulcer [Recovered/Resolved]
  - Diarrhoea [Recovered/Resolved]
  - Necrosis [Recovered/Resolved]
  - Dermatitis diaper [Recovered/Resolved]
